FAERS Safety Report 14609661 (Version 3)
Quarter: 2022Q3

REPORT INFORMATION
  Report Type: Spontaneous
  Country: CA (occurrence: CA)
  Receive Date: 20180307
  Receipt Date: 20220801
  Transmission Date: 20221026
  Serious: Yes (Other)
  Sender: FDA-Public Use
  Company Number: PHHY2018CA032225

PATIENT
  Age: 7 Year
  Sex: Female
  Weight: 28.3 kg

DRUGS (11)
  1. METHOTREXATE [Suspect]
     Active Substance: METHOTREXATE
     Indication: Immunomodulatory therapy
     Dosage: 10 MG
     Route: 065
     Dates: start: 20170123, end: 20171030
  2. METHOTREXATE [Suspect]
     Active Substance: METHOTREXATE
     Indication: Juvenile idiopathic arthritis
     Dosage: UNK
     Route: 065
     Dates: start: 20170901
  3. METHOTREXATE [Suspect]
     Active Substance: METHOTREXATE
     Dosage: 20 MG
     Route: 065
     Dates: start: 20171030, end: 20180430
  4. METHOTREXATE [Suspect]
     Active Substance: METHOTREXATE
     Dosage: 25 MG
     Route: 065
     Dates: start: 20180430
  5. INDOMETHACIN [Suspect]
     Active Substance: INDOMETHACIN
     Indication: Juvenile idiopathic arthritis
     Dosage: 25 MG
     Route: 065
     Dates: start: 20171221
  6. ACTEMRA [Suspect]
     Active Substance: TOCILIZUMAB
     Indication: Juvenile idiopathic arthritis
     Dosage: 280 MG
     Route: 065
     Dates: start: 20170529, end: 20180108
  7. ACTEMRA [Suspect]
     Active Substance: TOCILIZUMAB
     Indication: Immunomodulatory therapy
     Dosage: UNK
     Route: 065
     Dates: start: 20170905
  8. ACTEMRA [Suspect]
     Active Substance: TOCILIZUMAB
     Dosage: 220 MG
     Route: 065
     Dates: start: 20180108
  9. PREDNISONE [Concomitant]
     Active Substance: PREDNISONE
     Indication: Still^s disease
     Dosage: 4 MG
     Route: 065
     Dates: start: 20151207, end: 20170905
  10. CELECOXIB [Concomitant]
     Active Substance: CELECOXIB
     Indication: Juvenile idiopathic arthritis
     Dosage: UNK
     Route: 065
     Dates: start: 20160729, end: 20171221
  11. ASPIRIN [Concomitant]
     Active Substance: ASPIRIN
     Indication: Juvenile idiopathic arthritis
     Dosage: 80 MG
     Route: 065
     Dates: start: 20151208

REACTIONS (1)
  - Adrenal suppression [Recovering/Resolving]

NARRATIVE: CASE EVENT DATE: 20170905
